FAERS Safety Report 10196450 (Version 1)
Quarter: 2014Q2

REPORT INFORMATION
  Report Type: Spontaneous
  Country: ZA (occurrence: ZA)
  Receive Date: 20140527
  Receipt Date: 20140527
  Transmission Date: 20141212
  Serious: Yes (Death, Other)
  Sender: FDA-Public Use
  Company Number: ZA-009507513-1405ZAF009624

PATIENT
  Age: 61 Year
  Sex: Male
  Weight: 108 kg

DRUGS (3)
  1. ESMERON [Suspect]
     Dosage: 35 MG, ONCE
     Dates: start: 20140512, end: 20140512
  2. NEOSTIGMINE METHYLSULFATE [Suspect]
     Dosage: STRENGTH 2,5, DOSE UNK, BID
     Dates: start: 20140512, end: 20140512
  3. GLYCOPYRROLATE [Suspect]
     Dosage: STRENGTH 0,4, DOSE UNK, BID
     Dates: start: 20140512, end: 20140512

REACTIONS (4)
  - Death [Fatal]
  - Oxygen saturation decreased [Unknown]
  - Endotracheal intubation [Unknown]
  - Drug effect prolonged [Unknown]
